FAERS Safety Report 25762245 (Version 1)
Quarter: 2025Q3

REPORT INFORMATION
  Report Type: Report from Study
  Country: CN (occurrence: CN)
  Receive Date: 20250904
  Receipt Date: 20250904
  Transmission Date: 20251020
  Serious: Yes (Other)
  Sender: ROCHE
  Company Number: CN-ROCHE-10000380060

PATIENT
  Age: 12 Year
  Sex: Male

DRUGS (1)
  1. BEVACIZUMAB [Suspect]
     Active Substance: BEVACIZUMAB
     Indication: Brain stem glioma
     Route: 065

REACTIONS (5)
  - Vomiting [Unknown]
  - Fatigue [Unknown]
  - Pyrexia [Unknown]
  - Dizziness [Unknown]
  - Epilepsy [Unknown]
